FAERS Safety Report 5856343-8 (Version None)
Quarter: 2008Q3

REPORT INFORMATION
  Report Type: 
  Country: None (occurrence: None)
  Receive Date: 20080821
  Receipt Date: 20080813
  Transmission Date: 20090109
  Serious: Yes (Other)
  Sender: FDA-Public Use
  Company Number: GXKR2008GB07407

PATIENT
  Age: 60 Year
  Sex: Female

DRUGS (5)
  1. FENTANYL [Suspect]
     Indication: ANAESTHESIA
     Dosage: 200 UG, 50 UG BOLUSES, 800 UG, 100-200 UG/HR FOR 36 HOURS
  2. PAROXETINE HCL [Suspect]
     Indication: DEPRESSION
  3. PROPOFOL [Concomitant]
  4. ISOFLURANE [Concomitant]
  5. LEVOTHYROXINE SODIUM [Concomitant]

REACTIONS (8)
  - AGITATION [None]
  - CLONUS [None]
  - DISSOCIATION [None]
  - DRUG INTERACTION [None]
  - HYPERREFLEXIA [None]
  - HYPERTENSION [None]
  - HYPERTONIA [None]
  - SEROTONIN SYNDROME [None]
